FAERS Safety Report 18522834 (Version 1)
Quarter: 2020Q4

REPORT INFORMATION
  Report Type: Spontaneous
  Country: TW (occurrence: TW)
  Receive Date: 20201119
  Receipt Date: 20201119
  Transmission Date: 20210114
  Serious: Yes (Hospitalization)
  Sender: FDA-Public Use
  Company Number: TW-AMNEAL PHARMACEUTICALS-2020-AMRX-03610

PATIENT
  Age: 54 Year
  Sex: Male

DRUGS (3)
  1. NOREPINEPHRINE BITARTRATE. [Suspect]
     Active Substance: NOREPINEPHRINE BITARTRATE
     Dosage: 0.5 MILLILITER, SINGLE, UNDILUTED
     Route: 042
  2. PANTERA LUX [Concomitant]
     Indication: HYPERPLASIA
     Dosage: UNK
     Route: 065
  3. NOREPINEPHRINE BITARTRATE. [Suspect]
     Active Substance: NOREPINEPHRINE BITARTRATE
     Indication: HYPOTENSION
     Dosage: 0.5 MILLILITER, SINGLE, UNDILUTED
     Route: 042

REACTIONS (3)
  - Cardiogenic shock [Recovered/Resolved]
  - Accidental overdose [Recovered/Resolved]
  - Stress cardiomyopathy [Recovered/Resolved]
